FAERS Safety Report 9688405 (Version 5)
Quarter: 2014Q2

REPORT INFORMATION
  Report Type: Spontaneous
  Country: US (occurrence: None)
  Receive Date: 20131112
  Receipt Date: 20140620
  Transmission Date: 20141212
  Serious: Yes (Hospitalization)
  Sender: FDA-Public Use
  Company Number: 2013US001649

PATIENT
  Age: 73 Year
  Sex: Female
  Weight: 70.9 kg

DRUGS (9)
  1. PONATINIB [Suspect]
     Indication: CHRONIC MYELOID LEUKAEMIA
     Route: 048
     Dates: start: 20091221, end: 20130422
  2. PONATINIB [Suspect]
     Indication: HAEMATOLOGICAL MALIGNANCY
     Route: 048
     Dates: start: 20091221, end: 20130422
  3. ALDARA (IMIQUIMOD) [Concomitant]
  4. CARVEDILOL (CARVEDILOL) [Concomitant]
  5. IRBESARTAN IIRBESARTAN) [Concomitant]
  6. ISOSORBIDE (ISOSORBIDE) [Concomitant]
  7. MAGNESIUM OXIDE (MAGNESIUM OXIDE) [Concomitant]
  8. PRAVASTATIN SODIUM (PRAVASTATIN SODIUM) [Concomitant]
  9. SYNTHROID (LEVOTHYROXINE SODIUM) [Concomitant]

REACTIONS (15)
  - Visceral arterial ischaemia [None]
  - Dyspnoea exertional [None]
  - Heart rate decreased [None]
  - Blood pressure diastolic decreased [None]
  - Platelet count decreased [None]
  - Polyp [None]
  - Granuloma [None]
  - Coeliac artery stenosis [None]
  - Diverticulum intestinal [None]
  - Aortic arteriosclerosis [None]
  - Renal artery stenosis [None]
  - Constipation [None]
  - Colitis [None]
  - Haemoglobin decreased [None]
  - Blood pressure systolic increased [None]
